FAERS Safety Report 7691585-0 (Version None)
Quarter: 2011Q3

REPORT INFORMATION
  Report Type: 
  Country: None (occurrence: None)
  Receive Date: 20110817
  Receipt Date: 20110817
  Transmission Date: 20111222
  Serious: Yes (Death, Hospitalization)
  Sender: FDA-Public Use
  Company Number: None

PATIENT
  Sex: Female
  Weight: 99.8 kg

DRUGS (2)
  1. TAXOL [Suspect]
     Dosage: 350 MG
     Dates: end: 20110727
  2. TOPOTECAN [Suspect]
     Dosage: 4.5 MG
     Dates: end: 20110729

REACTIONS (12)
  - RESPIRATORY RATE INCREASED [None]
  - NAUSEA [None]
  - BLOOD PRESSURE DECREASED [None]
  - ASTHENIA [None]
  - GENERAL PHYSICAL HEALTH DETERIORATION [None]
  - CARDIO-RESPIRATORY ARREST [None]
  - CONSTIPATION [None]
  - HEART RATE INCREASED [None]
  - SENSORY LOSS [None]
  - TACHYCARDIA [None]
  - LETHARGY [None]
  - BRADYCARDIA [None]
